FAERS Safety Report 8143043 (Version 20)
Quarter: 2013Q4

REPORT INFORMATION
  Report Type: Spontaneous
  Country: US (occurrence: US)
  Receive Date: 20110919
  Receipt Date: 20131031
  Transmission Date: 20140711
  Serious: Yes (Life-Threatening, Hospitalization, Other)
  Sender: FDA-Public Use
  Company Number: US-ASTRAZENECA-2011SE54480

PATIENT
  Age: 39 Year
  Sex: Female
  Weight: 63 kg

DRUGS (62)
  1. SEROQUEL XR [Suspect]
     Indication: SCHIZOPHRENIA
     Route: 048
     Dates: start: 1997, end: 1997
  2. SEROQUEL XR [Suspect]
     Indication: TRANSIENT ISCHAEMIC ATTACK
     Route: 048
     Dates: start: 1997, end: 1997
  3. SEROQUEL XR [Suspect]
     Indication: ANXIETY
     Route: 048
     Dates: start: 1997, end: 1997
  4. SEROQUEL XR [Suspect]
     Indication: DEPRESSION
     Route: 048
     Dates: start: 1997, end: 1997
  5. SEROQUEL XR [Suspect]
     Indication: BIPOLAR DISORDER
     Route: 048
     Dates: start: 1997, end: 1997
  6. SEROQUEL XR [Suspect]
     Indication: SCHIZOPHRENIA
     Route: 048
     Dates: start: 1997, end: 201307
  7. SEROQUEL XR [Suspect]
     Indication: TRANSIENT ISCHAEMIC ATTACK
     Route: 048
     Dates: start: 1997, end: 201307
  8. SEROQUEL XR [Suspect]
     Indication: ANXIETY
     Route: 048
     Dates: start: 1997, end: 201307
  9. SEROQUEL XR [Suspect]
     Indication: DEPRESSION
     Route: 048
     Dates: start: 1997, end: 201307
  10. SEROQUEL XR [Suspect]
     Indication: BIPOLAR DISORDER
     Route: 048
     Dates: start: 1997, end: 201307
  11. SEROQUEL XR [Suspect]
     Indication: SCHIZOPHRENIA
     Route: 048
     Dates: start: 1998
  12. SEROQUEL XR [Suspect]
     Indication: TRANSIENT ISCHAEMIC ATTACK
     Route: 048
     Dates: start: 1998
  13. SEROQUEL XR [Suspect]
     Indication: ANXIETY
     Route: 048
     Dates: start: 1998
  14. SEROQUEL XR [Suspect]
     Indication: DEPRESSION
     Route: 048
     Dates: start: 1998
  15. SEROQUEL XR [Suspect]
     Indication: BIPOLAR DISORDER
     Route: 048
     Dates: start: 1998
  16. SEROQUEL XR [Suspect]
     Indication: SCHIZOPHRENIA
     Route: 048
  17. SEROQUEL XR [Suspect]
     Indication: TRANSIENT ISCHAEMIC ATTACK
     Route: 048
  18. SEROQUEL XR [Suspect]
     Indication: ANXIETY
     Route: 048
  19. SEROQUEL XR [Suspect]
     Indication: DEPRESSION
     Route: 048
  20. SEROQUEL XR [Suspect]
     Indication: BIPOLAR DISORDER
     Route: 048
  21. SEROQUEL XR [Suspect]
     Indication: SCHIZOPHRENIA
     Route: 048
  22. SEROQUEL XR [Suspect]
     Indication: TRANSIENT ISCHAEMIC ATTACK
     Route: 048
  23. SEROQUEL XR [Suspect]
     Indication: ANXIETY
     Route: 048
  24. SEROQUEL XR [Suspect]
     Indication: DEPRESSION
     Route: 048
  25. SEROQUEL XR [Suspect]
     Indication: BIPOLAR DISORDER
     Route: 048
  26. SEROQUEL XR [Suspect]
     Indication: SCHIZOPHRENIA
     Route: 048
  27. SEROQUEL XR [Suspect]
     Indication: TRANSIENT ISCHAEMIC ATTACK
     Route: 048
  28. SEROQUEL XR [Suspect]
     Indication: ANXIETY
     Route: 048
  29. SEROQUEL XR [Suspect]
     Indication: DEPRESSION
     Route: 048
  30. SEROQUEL XR [Suspect]
     Indication: BIPOLAR DISORDER
     Route: 048
  31. VALIUM [Suspect]
     Indication: ANXIETY
     Route: 048
     Dates: end: 2006
  32. VALIUM [Suspect]
     Indication: ANXIETY
     Route: 048
  33. CHEMOTHERAPY [Suspect]
     Indication: NEOPLASM MALIGNANT
     Route: 065
     Dates: start: 1987
  34. CHEMOTHERAPY [Suspect]
     Indication: NEOPLASM MALIGNANT
     Route: 065
     Dates: start: 1993
  35. CHEMOTHERAPY [Suspect]
     Indication: NEOPLASM MALIGNANT
     Route: 065
     Dates: start: 1995
  36. CHEMOTHERAPY [Suspect]
     Indication: NEOPLASM MALIGNANT
     Route: 065
     Dates: start: 1996
  37. CHEMOTHERAPY [Suspect]
     Indication: NEOPLASM MALIGNANT
     Route: 065
     Dates: start: 1999
  38. CHEMOTHERAPY [Suspect]
     Indication: NEOPLASM MALIGNANT
     Route: 065
     Dates: start: 2000, end: 2009
  39. RADIATION [Suspect]
     Indication: NEOPLASM MALIGNANT
     Route: 065
     Dates: start: 1987
  40. RADIATION [Suspect]
     Indication: NEOPLASM MALIGNANT
     Route: 065
     Dates: start: 1993
  41. RADIATION [Suspect]
     Indication: NEOPLASM MALIGNANT
     Route: 065
     Dates: start: 1995
  42. RADIATION [Suspect]
     Indication: NEOPLASM MALIGNANT
     Route: 065
     Dates: start: 1996
  43. RADIATION [Suspect]
     Indication: NEOPLASM MALIGNANT
     Route: 065
     Dates: start: 1999
  44. RADIATION [Suspect]
     Indication: NEOPLASM MALIGNANT
     Route: 065
     Dates: start: 2000
  45. HYDROCODEINE [Suspect]
     Indication: HEADACHE
     Route: 065
  46. LASIX [Suspect]
     Indication: OEDEMA PERIPHERAL
     Route: 048
  47. POTASSIUM [Suspect]
     Indication: BLOOD PRESSURE ABNORMAL
     Dosage: TWO TIMES A DAY
     Route: 048
     Dates: start: 1993
  48. POTASSIUM [Suspect]
     Indication: MINERAL SUPPLEMENTATION
     Dosage: TWO TIMES A DAY
     Route: 048
     Dates: start: 1993
  49. POTASSIUM [Suspect]
     Indication: BLOOD PRESSURE ABNORMAL
     Route: 048
  50. POTASSIUM [Suspect]
     Indication: MINERAL SUPPLEMENTATION
     Route: 048
  51. UNSPECIFIED HIGH BLOOD PRESSURE MEDICATION [Suspect]
     Indication: HYPERTENSION
     Route: 065
  52. UNSPECIFIED HIGH CHOLESTEROL MEDICATION [Suspect]
     Indication: BLOOD CHOLESTEROL INCREASED
     Route: 065
  53. CIPROFLOXACIN [Concomitant]
     Route: 042
  54. 18 DIFFERENT PILLS [Concomitant]
  55. FLUTICASONE TROPIONATE [Concomitant]
     Indication: MULTIPLE ALLERGIES
     Route: 045
  56. HYDROCHLOROTHIAZIDE [Concomitant]
     Indication: BLOOD PRESSURE ABNORMAL
     Route: 048
     Dates: start: 1993
  57. VENTOLIN HFA [Concomitant]
     Indication: CHRONIC OBSTRUCTIVE PULMONARY DISEASE
     Dosage: TID
     Route: 055
     Dates: start: 1993
  58. VENTOLIN HFA [Concomitant]
     Indication: ASTHMA
     Dosage: TID
     Route: 055
     Dates: start: 1993
  59. FLUTCASOME [Concomitant]
     Indication: MULTIPLE ALLERGIES
     Route: 045
     Dates: start: 1993
  60. METHOTREXATE [Concomitant]
  61. ACYCLOVIR [Concomitant]
  62. GABAPENTIN [Concomitant]

REACTIONS (70)
  - Nasopharyngitis [Unknown]
  - Herpes zoster [Unknown]
  - Insomnia [Not Recovered/Not Resolved]
  - Nausea [Unknown]
  - Gastroenteritis viral [Unknown]
  - Migraine [Not Recovered/Not Resolved]
  - Adverse event [Unknown]
  - Rash [Unknown]
  - Adverse drug reaction [Unknown]
  - Anxiety [Unknown]
  - Dehydration [Recovered/Resolved]
  - Dysgeusia [Not Recovered/Not Resolved]
  - Dysstasia [Not Recovered/Not Resolved]
  - Gait disturbance [Unknown]
  - Eating disorder [Unknown]
  - Activities of daily living impaired [Unknown]
  - Weight decreased [Recovered/Resolved]
  - Dyspnoea [Unknown]
  - Vomiting [Unknown]
  - Dizziness [Unknown]
  - Pyrexia [Unknown]
  - Weight increased [Unknown]
  - Off label use [Unknown]
  - Off label use [Not Recovered/Not Resolved]
  - Intentional drug misuse [Unknown]
  - Drug dose omission [Unknown]
  - Drug dispensing error [Unknown]
  - Drug ineffective [Recovered/Resolved]
  - Cervix carcinoma recurrent [Unknown]
  - Cancer in remission [Recovering/Resolving]
  - Recurrent cancer [Unknown]
  - Neoplasm malignant [Unknown]
  - Staphylococcal infection [Unknown]
  - Generalised oedema [Unknown]
  - Mouth haemorrhage [Unknown]
  - Visual acuity reduced [Unknown]
  - Radiation injury [Unknown]
  - Immunodeficiency [Unknown]
  - Anosmia [Unknown]
  - Ageusia [Unknown]
  - Amnesia [Unknown]
  - Liver tenderness [Unknown]
  - Malaise [Unknown]
  - Varicella [Unknown]
  - Fall [Recovered/Resolved]
  - Hepatic failure [Not Recovered/Not Resolved]
  - Cardiac arrest [Recovered/Resolved]
  - Blindness [Not Recovered/Not Resolved]
  - Myocardial infarction [Unknown]
  - Mental disorder [Recovered/Resolved]
  - Apparent death [Unknown]
  - Haematemesis [Recovered/Resolved]
  - Thrombosis [Unknown]
  - Convulsion [Not Recovered/Not Resolved]
  - Swelling face [Unknown]
  - Local swelling [Unknown]
  - Local swelling [Not Recovered/Not Resolved]
  - Infection [Recovered/Resolved]
  - Agitation [Unknown]
  - Hallucination, visual [Unknown]
  - Hypoacusis [Unknown]
  - Diarrhoea [Unknown]
  - Abdominal discomfort [Unknown]
  - Headache [Unknown]
  - Visual impairment [Unknown]
  - Abdominal pain upper [Recovered/Resolved]
  - Hepatic infection [Recovered/Resolved]
  - Schizophrenia [Unknown]
  - Bipolar disorder [Unknown]
  - Nasal discharge discolouration [Unknown]
